FAERS Safety Report 7215377-1 (Version None)
Quarter: 2011Q1

REPORT INFORMATION
  Report Type: 
  Country: None (occurrence: None)
  Receive Date: 20110107
  Receipt Date: 20110103
  Transmission Date: 20110831
  Serious: Yes (Other)
  Sender: FDA-Public Use
  Company Number: US-PFIZER INC-2011001187

PATIENT
  Sex: Male

DRUGS (1)
  1. CHANTIX [Suspect]
     Dosage: UNK
     Dates: start: 20101216

REACTIONS (5)
  - BACK INJURY [None]
  - DECREASED APPETITE [None]
  - EMPHYSEMA [None]
  - GAIT DISTURBANCE [None]
  - VOMITING [None]
